FAERS Safety Report 11370385 (Version 1)
Quarter: 2015Q3

REPORT INFORMATION
  Report Type: Spontaneous
  Country: BR (occurrence: BR)
  Receive Date: 20150812
  Receipt Date: 20150812
  Transmission Date: 20151125
  Serious: Yes (Hospitalization, Other)
  Sender: FDA-Public Use
  Company Number: BR-ASTRAZENECA-2015SE75822

PATIENT
  Age: 957 Month
  Sex: Female

DRUGS (9)
  1. COVERSYL [Concomitant]
     Active Substance: PERINDOPRIL
     Route: 048
  2. LANTUS [Concomitant]
     Active Substance: INSULIN GLARGINE
     Indication: DIABETES MELLITUS
     Dosage: TWO TIMES A DAY
     Route: 058
  3. LASIX [Concomitant]
     Active Substance: FUROSEMIDE
     Route: 048
  4. ASA [Concomitant]
     Active Substance: ASPIRIN
     Route: 048
  5. NEXIUM [Suspect]
     Active Substance: ESOMEPRAZOLE MAGNESIUM
     Indication: GASTRITIS
     Route: 048
     Dates: start: 2011
  6. MONOCORDIL [Concomitant]
     Active Substance: ISOSORBIDE MONONITRATE
     Route: 048
  7. GALVUS [Concomitant]
     Active Substance: VILDAGLIPTIN
     Indication: DIABETES MELLITUS
     Route: 048
  8. HUMALOG [Concomitant]
     Active Substance: INSULIN LISPRO
     Indication: DIABETES MELLITUS
     Dosage: DAILY
     Route: 058
  9. SELOZOK [Suspect]
     Active Substance: METOPROLOL SUCCINATE
     Route: 048

REACTIONS (1)
  - Coronary artery occlusion [Recovering/Resolving]

NARRATIVE: CASE EVENT DATE: 201506
